FAERS Safety Report 9368325 (Version 1)
Quarter: 2013Q2

REPORT INFORMATION
  Report Type: Spontaneous
  Country: US (occurrence: US)
  Receive Date: 20130625
  Receipt Date: 20130625
  Transmission Date: 20140414
  Serious: No
  Sender: FDA-Public Use
  Company Number: US-ASTELLAS-2013US000509

PATIENT
  Sex: Male
  Weight: 77 kg

DRUGS (3)
  1. VESICARE [Suspect]
     Indication: URINARY INCONTINENCE
     Dosage: 10 MG, UID/QD
     Route: 048
  2. PRADAXA [Concomitant]
     Indication: PROPHYLAXIS
     Dosage: UNK
     Route: 065
  3. OXYBUTYNIN [Concomitant]
     Indication: INCONTINENCE
     Dosage: UNK
     Route: 065

REACTIONS (1)
  - Rash generalised [Unknown]
